FAERS Safety Report 12059874 (Version 8)
Quarter: 2016Q3

REPORT INFORMATION
  Report Type: Spontaneous
  Country: JP (occurrence: JP)
  Receive Date: 20160210
  Receipt Date: 20160725
  Transmission Date: 20161109
  Serious: Yes (Hospitalization, Other)
  Sender: FDA-Public Use
  Company Number: JP-ACTELION-A-CH2015-127125

PATIENT
  Age: 41 Year
  Sex: Male

DRUGS (8)
  1. OPSUMIT [Suspect]
     Active Substance: MACITENTAN
     Indication: PULMONARY ARTERIAL HYPERTENSION
     Dosage: 10 MG, QD
     Route: 048
     Dates: start: 20151026, end: 20151106
  2. SUVOREXANT. [Suspect]
     Active Substance: SUVOREXANT
     Indication: EPILEPSY
     Dosage: UNK
     Route: 048
     Dates: start: 20160329
  3. KEPPRA [Suspect]
     Active Substance: LEVETIRACETAM
     Indication: SEIZURE
     Dosage: 500 MG, BID
     Route: 048
     Dates: start: 20160404
  4. LASIX [Concomitant]
     Active Substance: FUROSEMIDE
  5. UBIDECARENONE [Concomitant]
     Active Substance: UBIDECARENONE
  6. DIGOXIN. [Concomitant]
     Active Substance: DIGOXIN
  7. OPSUMIT [Suspect]
     Active Substance: MACITENTAN
     Dosage: 10 MG, QD
     Route: 048
     Dates: start: 20151108
  8. OXYGEN. [Concomitant]
     Active Substance: OXYGEN

REACTIONS (11)
  - Malaise [Recovered/Resolved]
  - Altered state of consciousness [Recovered/Resolved]
  - Epilepsy [Recovered/Resolved]
  - Aspartate aminotransferase increased [Not Recovered/Not Resolved]
  - Oxygen saturation decreased [Recovered/Resolved]
  - Seizure anoxic [Recovered/Resolved]
  - Hepatic function abnormal [Not Recovered/Not Resolved]
  - Blood alkaline phosphatase increased [Not Recovered/Not Resolved]
  - Seizure [Recovered/Resolved]
  - Hypoxia [Recovered/Resolved]
  - Alanine aminotransferase increased [Not Recovered/Not Resolved]

NARRATIVE: CASE EVENT DATE: 20151105
